FAERS Safety Report 10564104 (Version 1)
Quarter: 2014Q4

REPORT INFORMATION
  Report Type: Spontaneous
  Country: US (occurrence: US)
  Receive Date: 20141104
  Receipt Date: 20141104
  Transmission Date: 20150529
  Serious: No
  Sender: FDA-Public Use
  Company Number: US-TEVA-520353USA

PATIENT
  Age: 17 Year
  Sex: Female
  Weight: 65.83 kg

DRUGS (1)
  1. PLAN B ONE-STEP [Suspect]
     Active Substance: LEVONORGESTREL
     Indication: POST COITAL CONTRACEPTION
     Dosage: 1.5 MILLIGRAM DAILY;
     Route: 048
     Dates: start: 20140728, end: 20140728

REACTIONS (7)
  - Menstruation irregular [Not Recovered/Not Resolved]
  - Vision blurred [Recovered/Resolved]
  - Vaginal discharge [Recovered/Resolved]
  - Menstruation delayed [Recovered/Resolved]
  - Nausea [Recovered/Resolved]
  - Dysmenorrhoea [Not Recovered/Not Resolved]
  - Back pain [Not Recovered/Not Resolved]

NARRATIVE: CASE EVENT DATE: 201408
